FAERS Safety Report 8842770 (Version 1)
Quarter: 2012Q4

REPORT INFORMATION
  Report Type: 
  Country: US (occurrence: US)
  Receive Date: 20121016
  Receipt Date: 20121016
  Transmission Date: 20130627
  Serious: No
  Sender: FDA-Public Use
  Company Number: US-ASTRAZENECA-2012SE76292

PATIENT
  Age: 50 Year
  Sex: Male

DRUGS (1)
  1. SYMBICORT [Suspect]
     Indication: ASTHMA
     Dosage: 16/4.5 MCG, UNKNOWN
     Route: 055
     Dates: start: 201209

REACTIONS (2)
  - Wheezing [Unknown]
  - Drug ineffective [Unknown]
